FAERS Safety Report 9342909 (Version 1)
Quarter: 2013Q2

REPORT INFORMATION
  Report Type: Report from Study
  Country: ES (occurrence: ES)
  Receive Date: 20130611
  Receipt Date: 20130611
  Transmission Date: 20140414
  Serious: Yes (Death)
  Sender: FDA-Public Use
  Company Number: ES-GLAXOSMITHKLINE-B0898560A

PATIENT
  Sex: 0

DRUGS (2)
  1. MELPHALAN [Suspect]
     Indication: PLASMA CELL MYELOMA
     Route: 042
  2. BUSULPHAN [Suspect]
     Indication: PLASMA CELL MYELOMA
     Route: 042

REACTIONS (1)
  - Cardiac arrest [Fatal]
